FAERS Safety Report 14563214 (Version 1)
Quarter: 2018Q1

REPORT INFORMATION
  Report Type: Report from Study
  Country: US (occurrence: US)
  Receive Date: 20180222
  Receipt Date: 20180222
  Transmission Date: 20180509
  Serious: Yes (Other)
  Sender: FDA-Public Use
  Company Number: US-ELI_LILLY_AND_COMPANY-US201802005403

PATIENT
  Age: 74 Year
  Sex: Male

DRUGS (6)
  1. LANTUS [Suspect]
     Active Substance: INSULIN GLARGINE
     Indication: TYPE 1 DIABETES MELLITUS
     Dosage: 17 U, UNKNOWN
     Route: 065
  2. INSULIN, LISPRO [Suspect]
     Active Substance: INSULIN LISPRO
     Dosage: UNK UNK, UNKNOWN
     Route: 058
  3. INSULIN, LISPRO [Suspect]
     Active Substance: INSULIN LISPRO
     Dosage: 1 U, UNKNOWN
     Route: 058
  4. INSULIN, LISPRO [Suspect]
     Active Substance: INSULIN LISPRO
     Dosage: UNK UNK, UNKNOWN
     Route: 058
  5. INSULIN, LISPRO [Suspect]
     Active Substance: INSULIN LISPRO
     Indication: TYPE 1 DIABETES MELLITUS
     Dosage: UNK UNK, UNKNOWN
     Dates: start: 1968
  6. LANTUS [Suspect]
     Active Substance: INSULIN GLARGINE
     Dosage: 18 U, UNKNOWN
     Route: 065

REACTIONS (8)
  - Head injury [Recovered/Resolved]
  - Drug ineffective [Unknown]
  - Loss of consciousness [Unknown]
  - Fall [Unknown]
  - Hypoglycaemia [Unknown]
  - Blood glucose increased [Unknown]
  - Fall [Recovered/Resolved]
  - Rotator cuff syndrome [Recovering/Resolving]

NARRATIVE: CASE EVENT DATE: 201712
